FAERS Safety Report 5165132-1 (Version None)
Quarter: 2006Q4

REPORT INFORMATION
  Report Type: 
  Country: None (occurrence: None)
  Receive Date: 20061127
  Receipt Date: 20061121
  Transmission Date: 20070319
  Serious: Yes (Death, Life-Threatening)
  Sender: FDA-Public Use
  Company Number: THQ2006A01096

PATIENT
  Age: 70 Year
  Sex: Male

DRUGS (5)
  1. LANSOPRAZOLE [Suspect]
     Indication: BARRETT'S OESOPHAGUS
     Dosage: 15 MG (15 MG,1 IN 1 D) ORAL
     Route: 048
     Dates: start: 20010101, end: 20061005
  2. PROPRANOLOL [Suspect]
     Indication: HYPERTENSION
     Dosage: 80 MG (80 MG, 1 IN 1 D) PER ORAL
     Route: 048
     Dates: start: 20010101, end: 20061005
  3. ASCORBIC ACID [Concomitant]
  4. CETIRIZINE HCL [Concomitant]
  5. THIAMINE [Concomitant]

REACTIONS (2)
  - THROMBOCYTOPENIA [None]
  - THROMBOTIC STROKE [None]
